FAERS Safety Report 25255856 (Version 1)
Quarter: 2025Q2

REPORT INFORMATION
  Report Type: Spontaneous
  Country: US (occurrence: US)
  Receive Date: 20250430
  Receipt Date: 20250430
  Transmission Date: 20250717
  Serious: Yes (Other)
  Sender: MYLAN
  Company Number: US-MYLANLABS-2025M1036659

PATIENT
  Age: 33 Year
  Sex: Male

DRUGS (2)
  1. MESALAMINE [Suspect]
     Active Substance: MESALAMINE
     Indication: Proctitis
  2. MESALAMINE [Suspect]
     Active Substance: MESALAMINE
     Indication: Terminal ileitis

REACTIONS (1)
  - Drug ineffective [Unknown]
